FAERS Safety Report 7481244-1 (Version None)
Quarter: 2011Q2

REPORT INFORMATION
  Report Type: 
  Country: None (occurrence: None)
  Receive Date: 20110512
  Receipt Date: 20110512
  Transmission Date: 20111010
  Serious: No
  Sender: FDA-Public Use
  Company Number: None

PATIENT
  Age: 60 Year
  Sex: Female

DRUGS (2)
  1. MELOXICAM [Suspect]
     Indication: PAIN
     Dosage: 1 TABLET DAILY
     Dates: start: 20110101
  2. MELOXICAM [Suspect]
     Indication: PAIN
     Dosage: 1 TABLET DAILY
     Dates: start: 20090101

REACTIONS (1)
  - ATRIAL FIBRILLATION [None]
